FAERS Safety Report 7586445-X (Version None)
Quarter: 2011Q3

REPORT INFORMATION
  Report Type: 
  Country: None (occurrence: None)
  Receive Date: 20110701
  Receipt Date: 20110623
  Transmission Date: 20111222
  Serious: Yes (Other)
  Sender: FDA-Public Use
  Company Number: B0729932A

PATIENT
  Age: 91 Year
  Sex: Male

DRUGS (1)
  1. DUTASTERIDE/TAMSULIN HYDROCHLORIDE [Suspect]
     Route: 065
     Dates: start: 20110610

REACTIONS (2)
  - PARKINSON'S DISEASE [None]
  - MOBILITY DECREASED [None]
